FAERS Safety Report 7973159-7 (Version None)
Quarter: 2011Q4

REPORT INFORMATION
  Report Type: 
  Country: None (occurrence: None)
  Receive Date: 20111209
  Receipt Date: 20111201
  Transmission Date: 20120403
  Serious: Yes (Hospitalization)
  Sender: FDA-Public Use
  Company Number: 1000023678

PATIENT
  Age: 27 Year
  Sex: Female

DRUGS (3)
  1. XANAX [Concomitant]
  2. STILNOX (ZOLPIDEM TARTRATE) (ZOLPIDEM TARTRATE) [Concomitant]
  3. CITALOPRAM HYDROBROMIDE [Suspect]
     Indication: DEPRESSION
     Dosage: 40 MG (40 MG, 1IN 1 D)
     Dates: start: 20100701, end: 20110825

REACTIONS (2)
  - COLITIS MICROSCOPIC [None]
  - FOLATE DEFICIENCY [None]
